FAERS Safety Report 8132380-8 (Version None)
Quarter: 2012Q1

REPORT INFORMATION
  Report Type: 
  Country: None (occurrence: None)
  Receive Date: 20120213
  Receipt Date: 20120130
  Transmission Date: 20120608
  Serious: Yes (Hospitalization, Other)
  Sender: FDA-Public Use
  Company Number: US-ELI_LILLY_AND_COMPANY-US201112007062

PATIENT
  Sex: Female

DRUGS (2)
  1. IBUPROFEN (ADVIL) [Concomitant]
     Dosage: UNK, PRN
  2. FORTEO [Suspect]
     Indication: OSTEOPOROSIS
     Dosage: 20 UG, QD
     Dates: start: 20111130

REACTIONS (2)
  - UPPER LIMB FRACTURE [None]
  - ROAD TRAFFIC ACCIDENT [None]
